FAERS Safety Report 9708168 (Version 2)
Quarter: 2014Q1

REPORT INFORMATION
  Report Type: Spontaneous
  Country: IT (occurrence: None)
  Receive Date: 20131121
  Receipt Date: 20140320
  Transmission Date: 20141002
  Serious: Yes (Other)
  Sender: FDA-Public Use
  Company Number: 2013AP009776

PATIENT
  Age: 67 Year
  Sex: Female

DRUGS (2)
  1. LEVOFLOXACIN [Suspect]
     Dosage: 500 MG;UNKNOWN;PO;QD
     Route: 048
     Dates: start: 20130802, end: 20130809
  2. METFORMIN HYDROCHLORIDE [Suspect]
     Dosage: 1000 MG;UNKNOWN;PO;QD
     Route: 048
     Dates: start: 20130101, end: 20130809

REACTIONS (2)
  - Diabetes mellitus inadequate control [None]
  - Drug interaction [None]
